FAERS Safety Report 17437343 (Version 1)
Quarter: 2020Q1

REPORT INFORMATION
  Report Type: Report from Study
  Country: DE (occurrence: DE)
  Receive Date: 20200219
  Receipt Date: 20200219
  Transmission Date: 20200409
  Serious: Yes (Hospitalization, Other)
  Sender: FDA-Public Use
  Company Number: DE-MYLANLABS-2020M1018125

PATIENT
  Sex: Male
  Weight: 81 kg

DRUGS (13)
  1. TORASEMID [Concomitant]
     Active Substance: TORSEMIDE
     Indication: PULMONARY HYPERTENSION
     Dosage: 15 MILLIGRAM
     Route: 048
     Dates: start: 20190625, end: 201907
  2. SPIRONOLACTONE. [Concomitant]
     Active Substance: SPIRONOLACTONE
     Indication: CARDIAC FAILURE CONGESTIVE
     Dosage: 25 MILLIGRAM
     Route: 048
     Dates: start: 201907
  3. ATORVASTATIN [Concomitant]
     Active Substance: ATORVASTATIN
     Indication: HYPERCHOLESTEROLAEMIA
     Dosage: 40 MILLIGRAM
     Route: 048
     Dates: start: 201406
  4. CLOPIDOGREL [Suspect]
     Active Substance: CLOPIDOGREL BISULFATE
     Indication: PRODUCT USED FOR UNKNOWN INDICATION
     Dosage: 75 MILLIGRAM DAILY
     Route: 048
     Dates: start: 20190621
  5. APIXABAN [Suspect]
     Active Substance: APIXABAN
     Indication: PRODUCT USED FOR UNKNOWN INDICATION
     Dosage: UNK
     Route: 065
  6. TORASEMID [Concomitant]
     Active Substance: TORSEMIDE
     Dosage: 30 MILLIGRAM
     Route: 048
     Dates: start: 201907
  7. BISOPROLOL [Concomitant]
     Active Substance: BISOPROLOL
     Indication: CORONARY ARTERY DISEASE
     Dosage: 5 MILLIGRAM
     Route: 048
     Dates: start: 20190617, end: 201907
  8. RAMIPRIL. [Concomitant]
     Active Substance: RAMIPRIL
     Indication: HYPERTENSION
     Dosage: 10 MILLIGRAM
     Route: 048
     Dates: start: 201905, end: 201907
  9. CANDESARTAN. [Concomitant]
     Active Substance: CANDESARTAN
     Indication: HYPERTENSION
     Dosage: 4 MILLIGRAM
     Route: 048
     Dates: start: 201907
  10. PANTOPRAZOL                        /01263201/ [Concomitant]
     Active Substance: PANTOPRAZOLE
     Indication: PROPHYLAXIS AGAINST GASTROINTESTINAL ULCER
     Dosage: 80 MILLIGRAM
     Route: 048
     Dates: start: 201907
  11. BISOPROLOL [Concomitant]
     Active Substance: BISOPROLOL
     Dosage: 1.25 MILLIGRAM
     Route: 048
     Dates: start: 201907
  12. PHENPROCOUMON [Suspect]
     Active Substance: PHENPROCOUMON
     Indication: PRODUCT USED FOR UNKNOWN INDICATION
     Dosage: 3 MILLIGRAM DAILY
     Route: 065
     Dates: start: 20190621
  13. FLUTICASON [Concomitant]
     Active Substance: FLUTICASONE
     Indication: COUGH
     Dosage: 1 MILLIGRAM
     Route: 048
     Dates: start: 201907

REACTIONS (2)
  - Cystitis [Recovered/Resolved]
  - Cardiac failure [Unknown]

NARRATIVE: CASE EVENT DATE: 20190704
